FAERS Safety Report 14044918 (Version 3)
Quarter: 2018Q1

REPORT INFORMATION
  Report Type: Report from Study
  Country: US (occurrence: US)
  Receive Date: 20171005
  Receipt Date: 20180307
  Transmission Date: 20180508
  Serious: Yes (Hospitalization)
  Sender: FDA-Public Use
  Company Number: US-BIOGEN-2017BI00465828

PATIENT
  Age: 54 Year
  Sex: Female

DRUGS (1)
  1. TECFIDERA [Suspect]
     Active Substance: DIMETHYL FUMARATE
     Indication: MULTIPLE SCLEROSIS
     Dosage: MAINTENANCE DOSE
     Route: 048

REACTIONS (7)
  - Drug hypersensitivity [Unknown]
  - Speech disorder [Unknown]
  - Confusional state [Unknown]
  - Urinary incontinence [Unknown]
  - Multiple sclerosis relapse [Unknown]
  - Cystitis [Unknown]
  - Seizure [Unknown]

NARRATIVE: CASE EVENT DATE: 201706
